FAERS Safety Report 6149066-1 (Version None)
Quarter: 2009Q2

REPORT INFORMATION
  Report Type: 
  Country: None (occurrence: None)
  Receive Date: 20090409
  Receipt Date: 20090406
  Transmission Date: 20091009
  Serious: Yes (Other)
  Sender: FDA-Public Use
  Company Number: US-ASTRAZENECA-2009UW08626

PATIENT
  Age: 72 Year
  Sex: Male
  Weight: 71.7 kg

DRUGS (9)
  1. ATACAND [Suspect]
     Indication: HYPERTENSION
     Route: 048
  2. CHEMOTHERAPY [Concomitant]
  3. SIMVASTATIN [Concomitant]
     Indication: BLOOD CHOLESTEROL INCREASED
  4. ASPIRIN [Concomitant]
  5. FINASTERIDE [Concomitant]
     Indication: PROSTATOMEGALY
  6. ATENOLOL [Concomitant]
     Indication: HYPERTENSION
     Route: 048
  7. PROTONIX [Concomitant]
     Indication: GASTRIC DISORDER
  8. CARAFATE [Concomitant]
     Indication: GASTRIC DISORDER
  9. FLOMAX [Concomitant]
     Indication: PROSTATOMEGALY

REACTIONS (1)
  - GASTRIC DISORDER [None]
